FAERS Safety Report 18255252 (Version 9)
Quarter: 2025Q4

REPORT INFORMATION
  Report Type: Report from Study
  Country: US (occurrence: US)
  Receive Date: 20200910
  Receipt Date: 20251106
  Transmission Date: 20260117
  Serious: No
  Sender: DAIICHI
  Company Number: US-DSJP-DSU-2020-126252

PATIENT
  Age: 69 Year
  Sex: Female
  Weight: 65.76 kg

DRUGS (8)
  1. PEXIDARTINIB [Suspect]
     Active Substance: PEXIDARTINIB
     Indication: Connective tissue neoplasm
     Dosage: 400 MG, BID (400MG IN THE MORNING AND 400MG AT NIGHT)
     Route: 048
     Dates: start: 20200117
  2. PEXIDARTINIB [Suspect]
     Active Substance: PEXIDARTINIB
     Indication: Soft tissue neoplasm
     Dosage: 400 MG, BID
     Route: 048
     Dates: start: 20220114
  3. PEXIDARTINIB [Suspect]
     Active Substance: PEXIDARTINIB
     Dosage: 1 CAP Q AM AND 2 CAPS Q PM
     Route: 048
     Dates: start: 20220124
  4. PEXIDARTINIB [Suspect]
     Active Substance: PEXIDARTINIB
     Dosage: 375 MG, QD
     Route: 048
  5. PEXIDARTINIB [Suspect]
     Active Substance: PEXIDARTINIB
     Dosage: 125 MG
     Route: 048
     Dates: start: 20240114
  6. PEXIDARTINIB [Suspect]
     Active Substance: PEXIDARTINIB
     Dosage: 125MG TAKE 1 CAPSULE BY MOUTH EVERY AM AND 2 CAPS EVERY PM
     Route: 048
     Dates: start: 20250205
  7. HYDROCHLOROTHIAZIDE [Concomitant]
     Active Substance: HYDROCHLOROTHIAZIDE
     Indication: Product used for unknown indication
     Dosage: UNK
     Route: 065
  8. LEVOTHYROXINE [Concomitant]
     Active Substance: LEVOTHYROXINE
     Indication: Product used for unknown indication
     Dosage: UNK
     Route: 065

REACTIONS (13)
  - Aspartate aminotransferase increased [Unknown]
  - Arthritis [Unknown]
  - White blood cell count decreased [Unknown]
  - Pneumonia [Unknown]
  - Urinary tract infection [Unknown]
  - Hypertension [Unknown]
  - Pruritus [Not Recovered/Not Resolved]
  - Nausea [Unknown]
  - Blood pressure increased [Recovered/Resolved]
  - Incorrect dose administered [Not Recovered/Not Resolved]
  - Product dispensing error [Unknown]
  - Product use issue [Not Recovered/Not Resolved]
  - Product dose omission issue [Unknown]

NARRATIVE: CASE EVENT DATE: 20200801
